FAERS Safety Report 5640744-7 (Version None)
Quarter: 2008Q1

REPORT INFORMATION
  Report Type: 
  Country: None (occurrence: None)
  Receive Date: 20080225
  Receipt Date: 20080213
  Transmission Date: 20080703
  Serious: Yes (Life-Threatening)
  Sender: FDA-Public Use
  Company Number: 2008VX000308

PATIENT
  Sex: Female

DRUGS (1)
  1. FLURAZEPAM HCL [Suspect]
     Indication: SCHIZOPHRENIA

REACTIONS (1)
  - TOXIC EPIDERMAL NECROLYSIS [None]
